FAERS Safety Report 9147228 (Version 2)
Quarter: 2013Q1

REPORT INFORMATION
  Report Type: Spontaneous
  Country: DE (occurrence: None)
  Receive Date: 20130226
  Receipt Date: 20130307
  Transmission Date: 20140127
  Serious: Yes (Death, Life-Threatening)
  Sender: FDA-Public Use
  Company Number: TPG2013A00214

PATIENT
  Age: 84 Year
  Sex: Female

DRUGS (5)
  1. ACTOS (PIOGLITAZONE HYDROCHLORIDE) [Suspect]
     Indication: DIABETES MELLITUS
     Dosage: 30  MG  (30  MG, 1 IN 1 D)?UNKNOWN  -  STOPPED
     Route: 048
     Dates: start: 201211, end: 20130216
  2. JANUMET [Concomitant]
  3. MOXONIDIN [Concomitant]
  4. BISOPROLOL [Concomitant]
  5. ALLOPURINOL [Concomitant]

REACTIONS (3)
  - Left ventricular failure [None]
  - Pulmonary oedema [None]
  - Cardiac death [None]
